FAERS Safety Report 5219271-7 (Version None)
Quarter: 2007Q1

REPORT INFORMATION
  Report Type: 
  Country: None (occurrence: None)
  Receive Date: 20070123
  Receipt Date: 20070110
  Transmission Date: 20070707
  Serious: Yes (Death)
  Sender: FDA-Public Use
  Company Number: 151731ISR

PATIENT
  Age: 42 Year
  Sex: Female

DRUGS (2)
  1. CITALOPRAM HYDROBROMIDE [Suspect]
  2. MOCLOBEMIDE [Suspect]

REACTIONS (1)
  - SEROTONIN SYNDROME [None]
